FAERS Safety Report 13090078 (Version 2)
Quarter: 2017Q1

REPORT INFORMATION
  Report Type: Spontaneous
  Country: ES (occurrence: ES)
  Receive Date: 20170105
  Receipt Date: 20170113
  Transmission Date: 20170428
  Serious: Yes (Life-Threatening, Hospitalization, Other)
  Sender: FDA-Public Use
  Company Number: ES-GLAXOSMITHKLINE-ES2016195577

PATIENT
  Age: 7 Year
  Sex: Male

DRUGS (2)
  1. TIMOLOL. [Interacting]
     Active Substance: TIMOLOL
     Indication: GLAUCOMA
     Dates: start: 20130214
  2. SALBUTAMOL [Suspect]
     Active Substance: ALBUTEROL
     Indication: ASTHMA
     Dosage: OCCASIONALLY

REACTIONS (4)
  - Asthma [Recovered/Resolved]
  - Coma scale abnormal [Recovered/Resolved]
  - Drug interaction [Recovered/Resolved]
  - Loss of consciousness [Recovered/Resolved]

NARRATIVE: CASE EVENT DATE: 20130214
